FAERS Safety Report 13554808 (Version 1)
Quarter: 2017Q2

REPORT INFORMATION
  Report Type: Spontaneous
  Country: FR (occurrence: FR)
  Receive Date: 20170517
  Receipt Date: 20170517
  Transmission Date: 20170830
  Serious: Yes (Life-Threatening)
  Sender: FDA-Public Use
  Company Number: FR-SA-2017SA087440

PATIENT
  Age: 38 Year
  Sex: Male

DRUGS (7)
  1. FLEXPEN [Concomitant]
     Active Substance: UNSPECIFIED INGREDIENT
  2. NOVORAPID [Suspect]
     Active Substance: INSULIN ASPART
     Indication: SUICIDE ATTEMPT
     Route: 058
  3. NOVORAPID [Suspect]
     Active Substance: INSULIN ASPART
     Indication: SUICIDE ATTEMPT
     Dosage: 6 SYRINGES IN TOTAL
     Route: 058
     Dates: start: 20170411, end: 20170411
  4. LANTUS [Suspect]
     Active Substance: INSULIN GLARGINE
     Indication: SUICIDE ATTEMPT
     Route: 058
  5. LANTUS [Suspect]
     Active Substance: INSULIN GLARGINE
     Indication: SUICIDE ATTEMPT
     Dosage: 6 SYRINGES IN TOTAL
     Route: 058
     Dates: start: 20170411, end: 20170411
  6. LANTUS [Suspect]
     Active Substance: INSULIN GLARGINE
     Indication: SUICIDE ATTEMPT
     Route: 058
  7. FLEXPEN [Concomitant]
     Active Substance: UNSPECIFIED INGREDIENT
     Dosage: 6 SYRINGES IN TOTAL
     Dates: start: 20170411, end: 20170411

REACTIONS (4)
  - Coma [Recovered/Resolved]
  - Nervous system disorder [Not Recovered/Not Resolved]
  - Tachycardia [Recovered/Resolved]
  - Hypoglycaemia [Recovered/Resolved]

NARRATIVE: CASE EVENT DATE: 20170411
